FAERS Safety Report 7433222-6 (Version None)
Quarter: 2011Q2

REPORT INFORMATION
  Report Type: 
  Country: None (occurrence: None)
  Receive Date: 20110422
  Receipt Date: 20110408
  Transmission Date: 20111010
  Serious: Yes (Hospitalization, Other)
  Sender: FDA-Public Use
  Company Number: PHHY2011US29798

PATIENT
  Sex: Female

DRUGS (6)
  1. VALTURNA [Suspect]
     Dosage: 300/320 MG, QD
  2. DIOVAN [Concomitant]
  3. MULTAQ [Concomitant]
  4. LOPRESSOR [Concomitant]
  5. TEKTURNA [Concomitant]
  6. ANTIBIOTICS [Concomitant]

REACTIONS (7)
  - INFECTION [None]
  - LOSS OF CONSCIOUSNESS [None]
  - BLOOD PRESSURE INCREASED [None]
  - DYSPNOEA [None]
  - PYREXIA [None]
  - MALAISE [None]
  - CARDIAC FAILURE [None]
